FAERS Safety Report 7861609-6 (Version None)
Quarter: 2011Q4

REPORT INFORMATION
  Report Type: 
  Country: None (occurrence: None)
  Receive Date: 20111027
  Receipt Date: 20111020
  Transmission Date: 20120403
  Serious: Yes (Other)
  Sender: FDA-Public Use
  Company Number: BR-PFIZER INC-2011247466

PATIENT
  Age: 63 Year
  Sex: Female
  Weight: 65 kg

DRUGS (6)
  1. VARENICLINE TARTRATE [Suspect]
     Indication: SMOKING CESSATION THERAPY
     Dosage: UNK
     Route: 048
     Dates: start: 20111012, end: 20110101
  2. PRESSAT [Concomitant]
     Indication: HYPERTENSION
     Dosage: UNSPECIFIED DOSAGE, ONE TABLET IN THE MORNING
     Dates: start: 19910101
  3. CAPTOPRIL [Concomitant]
     Indication: HYPERTENSION
     Dosage: UNSPECIFIED DOSAGE, TWICE DAILY
     Dates: start: 19910101
  4. LIPITOR [Concomitant]
     Indication: HYPERTENSION
     Dosage: 10 MG, ONE TABLET AT NIGHT ON ALTERNATE DAY
     Dates: start: 20010101
  5. VARENICLINE TARTRATE [Suspect]
     Dosage: 0.5 MG, EVERY 12 HOURS
     Route: 048
     Dates: start: 20110101, end: 20111018
  6. DILBLOC [Concomitant]
     Indication: HYPERTENSION
     Dosage: 10 MG, 1X/DAY
     Dates: start: 19910101

REACTIONS (11)
  - PHOTOPHOBIA [None]
  - HAEMORRHOIDS [None]
  - ARTHRALGIA [None]
  - DYSGEUSIA [None]
  - IRRITABILITY [None]
  - ABDOMINAL DISTENSION [None]
  - SOMNOLENCE [None]
  - CONSTIPATION [None]
  - HEADACHE [None]
  - BLOOD PRESSURE INCREASED [None]
  - MALAISE [None]
